FAERS Safety Report 25016723 (Version 1)
Quarter: 2025Q1

REPORT INFORMATION
  Report Type: Report from Study
  Country: CA (occurrence: CA)
  Receive Date: 20250227
  Receipt Date: 20250227
  Transmission Date: 20250409
  Serious: Yes (Other)
  Sender: JOHNSON AND JOHNSON
  Company Number: CA-JNJFOC-20231017265

PATIENT
  Age: 64 Year
  Sex: Male
  Weight: 66 kg

DRUGS (19)
  1. SIMPONI [Suspect]
     Active Substance: GOLIMUMAB
     Indication: Rheumatoid arthritis
     Dosage: INJECTION 25?BATCH NUMBER DATE ALSO REPORTED AS PGS2LMD X
     Route: 058
     Dates: start: 20221007
  2. SIMPONI [Suspect]
     Active Substance: GOLIMUMAB
     Route: 058
     Dates: start: 20221007
  3. SIMPONI [Suspect]
     Active Substance: GOLIMUMAB
     Route: 058
     Dates: start: 20221007
  4. SIMPONI [Suspect]
     Active Substance: GOLIMUMAB
     Route: 058
     Dates: start: 20221007
  5. SIMPONI [Suspect]
     Active Substance: GOLIMUMAB
     Route: 058
     Dates: start: 20221007
  6. SIMPONI [Suspect]
     Active Substance: GOLIMUMAB
     Route: 058
  7. SIMPONI [Suspect]
     Active Substance: GOLIMUMAB
     Route: 058
     Dates: start: 20221007
  8. SULFASALAZINE [Concomitant]
     Active Substance: SULFASALAZINE
     Route: 048
     Dates: end: 202411
  9. OMEPRAZOLE [Concomitant]
     Active Substance: OMEPRAZOLE
  10. FLUOXETINE [Concomitant]
     Active Substance: FLUOXETINE HYDROCHLORIDE
  11. VITAMINS [Concomitant]
     Active Substance: VITAMINS
  12. CALCIUM [Concomitant]
     Active Substance: CALCIUM
  13. HERBALS\TURMERIC [Concomitant]
     Active Substance: HERBALS\TURMERIC
  14. MELATONIN [Concomitant]
     Active Substance: MELATONIN
  15. VITAMIN C [Concomitant]
     Active Substance: ASCORBIC ACID
  16. ZINC [Concomitant]
     Active Substance: ZINC
  17. mirabeck [Concomitant]
  18. HYDROXYCHLOROQUINE [Concomitant]
     Active Substance: HYDROXYCHLOROQUINE
     Indication: Product used for unknown indication
     Route: 065
  19. VITAMINS NOS [Concomitant]
     Active Substance: VITAMINS

REACTIONS (13)
  - Rheumatoid arthritis [Recovering/Resolving]
  - Central nervous system lesion [Unknown]
  - Hypoaesthesia [Unknown]
  - Feeling abnormal [Unknown]
  - Head injury [Unknown]
  - Contusion [Unknown]
  - Fall [Unknown]
  - Brain fog [Unknown]
  - Constipation [Not Recovered/Not Resolved]
  - Glossitis [Unknown]
  - Bladder disorder [Unknown]
  - Diarrhoea [Unknown]
  - Therapeutic response decreased [Not Recovered/Not Resolved]

NARRATIVE: CASE EVENT DATE: 20230801
